FAERS Safety Report 14038360 (Version 1)
Quarter: 2017Q4

REPORT INFORMATION
  Report Type: Other
  Country: CA (occurrence: CA)
  Receive Date: 20171004
  Receipt Date: 20171004
  Transmission Date: 20180321
  Serious: Yes (Hospitalization)
  Sender: FDA-Public Use
  Company Number: CA-APOTEX-2017AP019033

PATIENT
  Age: 31 Year
  Sex: Female

DRUGS (2)
  1. APO-MIDAZOLAM INJECTABLE (APOTEX STD) [Suspect]
     Active Substance: MIDAZOLAM HYDROCHLORIDE
     Indication: PRODUCT USED FOR UNKNOWN INDICATION
     Dosage: UNK, BOLUS
     Route: 042
  2. BENZOCAINE. [Suspect]
     Active Substance: BENZOCAINE
     Indication: APPLICATION SITE ANAESTHESIA
     Dosage: UNK
     Route: 061

REACTIONS (3)
  - Rash [Unknown]
  - Swelling face [Unknown]
  - Eyelid oedema [Unknown]
